FAERS Safety Report 4614377-5 (Version None)
Quarter: 2005Q2

REPORT INFORMATION
  Report Type: 
  Country: None (occurrence: None)
  Receive Date: 20050307
  Receipt Date: 20050121
  Transmission Date: 20051028
  Serious: Yes (Other)
  Sender: FDA-Public Use
  Company Number: USA050188963

PATIENT
  Age: 47 Year
  Sex: Female

DRUGS (2)
  1. ALIMITA (PEMETREXED) [Suspect]
     Indication: NON-SMALL CELL LUNG CANCER
  2. IRESSA [Concomitant]

REACTIONS (2)
  - RASH [None]
  - RASH PRURITIC [None]
